FAERS Safety Report 18899477 (Version 5)
Quarter: 2021Q2

REPORT INFORMATION
  Report Type: Spontaneous
  Country: JP (occurrence: JP)
  Receive Date: 20210216
  Receipt Date: 20210419
  Transmission Date: 20210717
  Serious: Yes (Death, Other)
  Sender: FDA-Public Use
  Company Number: JP-PFIZER INC-2021072280

PATIENT
  Age: 48 Year
  Sex: Male
  Weight: 102 kg

DRUGS (6)
  1. BAVENCIO [Suspect]
     Active Substance: AVELUMAB
     Dosage: 1000 MG, CYCLIC (ONCE EVERY 2 WEEKS)
     Route: 042
     Dates: start: 20210122
  2. DOBUPUM [Concomitant]
     Active Substance: DOBUTAMINE HYDROCHLORIDE
     Indication: CARDIAC FAILURE CONGESTIVE
     Dosage: 75 MG, DAILY
     Route: 042
     Dates: start: 20210113
  3. FAMOTIDINE. [Concomitant]
     Active Substance: FAMOTIDINE
     Dosage: 20 MG, 1X/DAY
     Route: 048
  4. ROSUVASTATIN. [Concomitant]
     Active Substance: ROSUVASTATIN
     Dosage: 5 MG, 1X/DAY
     Route: 048
  5. INLYTA [Suspect]
     Active Substance: AXITINIB
     Dosage: 2 MG, 2X/DAY
     Route: 048
     Dates: start: 20210122, end: 20210125
  6. SAMSCA [Concomitant]
     Active Substance: TOLVAPTAN
     Indication: CARDIAC FAILURE CONGESTIVE
     Dosage: 15 MG, 1X/DAY
     Route: 048
     Dates: start: 20210113

REACTIONS (7)
  - Renal impairment [Unknown]
  - Multiple organ dysfunction syndrome [Fatal]
  - Liver disorder [Fatal]
  - Dysuria [Unknown]
  - Neoplasm progression [Fatal]
  - Disseminated intravascular coagulation [Fatal]
  - Congestive hepatopathy [Fatal]

NARRATIVE: CASE EVENT DATE: 202101
